FAERS Safety Report 8072625-6 (Version None)
Quarter: 2011Q4

REPORT INFORMATION
  Report Type: 
  Country: None (occurrence: None)
  Receive Date: 20111221
  Receipt Date: 20101122
  Transmission Date: 20120403
  Serious: Yes (Other)
  Sender: FDA-Public Use
  Company Number: PHHY2010US59489

PATIENT
  Age: 69 Year
  Sex: Male

DRUGS (1)
  1. EXJADE [Suspect]
     Dosage: 1500 MG, QD, ORAL
     Route: 048

REACTIONS (4)
  - CATARACT [None]
  - VISION BLURRED [None]
  - RENAL IMPAIRMENT [None]
  - NAUSEA [None]
